FAERS Safety Report 5010284-7 (Version None)
Quarter: 2006Q2

REPORT INFORMATION
  Report Type: 
  Country: None (occurrence: None)
  Receive Date: 20060404
  Receipt Date: 20051223
  Transmission Date: 20061013
  Serious: No
  Sender: FDA-Public Use
  Company Number: US200512000669

PATIENT
  Age: 65 Year
  Sex: Female
  Weight: 75.3 kg

DRUGS (2)
  1. CYMBALTA [Suspect]
     Dosage: 60 MG
     Dates: start: 20051114, end: 20051128
  2. EFFEXOR [Concomitant]

REACTIONS (1)
  - HYPERTENSION [None]
